FAERS Safety Report 8181627-0 (Version None)
Quarter: 2012Q1

REPORT INFORMATION
  Report Type: 
  Country: None (occurrence: None)
  Receive Date: 20120302
  Receipt Date: 20120227
  Transmission Date: 20120608
  Serious: Yes (Other)
  Sender: FDA-Public Use
  Company Number: FR-GILEAD-2011-0047248

PATIENT
  Age: 27 Year
  Sex: Male

DRUGS (5)
  1. ZITHROMAX [Concomitant]
     Dosage: UNK
     Dates: start: 20111116, end: 20111121
  2. TRUVADA [Suspect]
     Indication: EXPOSURE TO COMMUNICABLE DISEASE
     Dosage: 1 DF, QD
     Dates: start: 20111116, end: 20111121
  3. TRUVADA [Suspect]
     Dosage: 4 DF, QD
     Dates: start: 20111121, end: 20111121
  4. KALETRA [Concomitant]
     Indication: EXPOSURE TO COMMUNICABLE DISEASE
     Dosage: UNK
     Dates: start: 20111116, end: 20111121
  5. TRUVADA [Suspect]
     Dosage: 2 DF, QD
     Dates: start: 20111119, end: 20111120

REACTIONS (2)
  - CREATININE RENAL CLEARANCE DECREASED [None]
  - ACCIDENTAL OVERDOSE [None]
